FAERS Safety Report 19733761 (Version 4)
Quarter: 2021Q4

REPORT INFORMATION
  Report Type: Spontaneous
  Country: BR (occurrence: BR)
  Receive Date: 20210823
  Receipt Date: 20211116
  Transmission Date: 20220303
  Serious: Yes (Other)
  Sender: FDA-Public Use
  Company Number: BR-ABBOTT-2021A-1338801

PATIENT
  Sex: Female
  Weight: 58 kg

DRUGS (1)
  1. SYNTHROID [Suspect]
     Active Substance: LEVOTHYROXINE SODIUM
     Indication: Thyroid hormone replacement therapy
     Dosage: IN THE MORNING BEFORE BREAKFAST IN FASTING
     Route: 048
     Dates: start: 200003

REACTIONS (3)
  - Diverticulitis [Recovered/Resolved]
  - Intestinal operation [Unknown]
  - Functional gastrointestinal disorder [Unknown]

NARRATIVE: CASE EVENT DATE: 20200101
